APPROVED DRUG PRODUCT: GRISEOFULVIN,ULTRAMICROSIZE
Active Ingredient: GRISEOFULVIN, ULTRAMICROSIZE
Strength: 250MG
Dosage Form/Route: TABLET;ORAL
Application: A202545 | Product #002 | TE Code: AB
Applicant: SIGMAPHARM LABORATORIES LLC
Approved: Oct 22, 2012 | RLD: No | RS: No | Type: RX